FAERS Safety Report 8981770 (Version 1)
Quarter: 2012Q4

REPORT INFORMATION
  Report Type: 
  Country: IT (occurrence: IT)
  Receive Date: 20121223
  Receipt Date: 20121223
  Transmission Date: 20130627
  Serious: Yes (Other)
  Sender: FDA-Public Use
  Company Number: PHHY2012IT110655

PATIENT
  Sex: Male

DRUGS (3)
  1. AREDIA [Suspect]
     Indication: METASTASES TO BREAST
     Dosage: UNK UKN, UNK
     Dates: start: 20040701, end: 20101201
  2. ZOMETA [Suspect]
     Indication: METASTASES TO BONE
     Dosage: 4 mg, QMO
     Dates: start: 20040101, end: 20051101
  3. FEMARA [Concomitant]

REACTIONS (1)
  - Osteonecrosis of jaw [Recovering/Resolving]
